FAERS Safety Report 6057045-8 (Version None)
Quarter: 2009Q1

REPORT INFORMATION
  Report Type: 
  Country: None (occurrence: None)
  Receive Date: 20090129
  Receipt Date: 20090121
  Transmission Date: 20090719
  Serious: Yes (Other)
  Sender: FDA-Public Use
  Company Number: IT-TEVA-184293ISR

PATIENT
  Age: 76 Year
  Sex: Female

DRUGS (4)
  1. VINCRISTINE [Suspect]
  2. BLEOMYCIN SULFATE [Suspect]
  3. CYCLOPHOSPHAMIDE [Suspect]
  4. ETOPOSIDE [Suspect]

REACTIONS (3)
  - ACUTE RESPIRATORY DISTRESS SYNDROME [None]
  - ACUTE RESPIRATORY FAILURE [None]
  - DIFFUSE ALVEOLAR DAMAGE [None]
